FAERS Safety Report 5732859-X (Version None)
Quarter: 2008Q2

REPORT INFORMATION
  Report Type: 
  Country: None (occurrence: None)
  Receive Date: 20080507
  Receipt Date: 20080507
  Transmission Date: 20081010
  Serious: Yes (Death)
  Sender: FDA-Public Use
  Company Number: None

PATIENT
  Age: 70 Year
  Sex: Male
  Weight: 67.1324 kg

DRUGS (1)
  1. DIGITEK 0.125 MG FROM WALMART [Suspect]
     Indication: ATRIAL FIBRILLATION
     Dosage: 0.125 5 DAYS A WEEK PO
     Route: 048
     Dates: start: 20000101, end: 20080105

REACTIONS (2)
  - MYOCARDIAL INFARCTION [None]
  - PHARMACEUTICAL PRODUCT COMPLAINT [None]
